FAERS Safety Report 7140968-6 (Version None)
Quarter: 2010Q4

REPORT INFORMATION
  Report Type: 
  Country: None (occurrence: None)
  Receive Date: 20101122
  Receipt Date: 20101108
  Transmission Date: 20110411
  Serious: Yes (Death)
  Sender: FDA-Public Use
  Company Number: 2010SP003157

PATIENT
  Age: 93 Year
  Sex: Female

DRUGS (3)
  1. XOPENEX [Suspect]
     Indication: PNEUMONIA
     Dosage: INHALATION
     Route: 055
     Dates: start: 20101001, end: 20101001
  2. ATROVENT [Suspect]
     Indication: PNEUMONIA
  3. BROVANA [Concomitant]

REACTIONS (2)
  - ASTHENIA [None]
  - PLEURAL EFFUSION [None]
